FAERS Safety Report 18855481 (Version 1)
Quarter: 2021Q1

REPORT INFORMATION
  Report Type: Spontaneous
  Country: JP (occurrence: JP)
  Receive Date: 20210205
  Receipt Date: 20210205
  Transmission Date: 20210420
  Serious: Yes (Other)
  Sender: FDA-Public Use
  Company Number: JP-PFIZER INC-2021094152

PATIENT
  Age: 60 Year
  Sex: Male

DRUGS (1)
  1. CHAMPIX 0.5MG [Suspect]
     Active Substance: VARENICLINE TARTRATE
     Dosage: 0.5 MG

REACTIONS (3)
  - Lung neoplasm malignant [Unknown]
  - Metabolic syndrome [Unknown]
  - Hyperlipidaemia [Unknown]
